FAERS Safety Report 23235891 (Version 2)
Quarter: 2023Q4

REPORT INFORMATION
  Report Type: Spontaneous
  Country: US (occurrence: US)
  Receive Date: 20231128
  Receipt Date: 20231228
  Transmission Date: 20240110
  Serious: No
  Sender: FDA-Public Use
  Company Number: US-PFIZER INC-202300385731

PATIENT
  Age: 63 Year
  Sex: Female
  Weight: 86.168 kg

DRUGS (2)
  1. PAXLOVID [Suspect]
     Active Substance: NIRMATRELVIR\RITONAVIR
     Indication: COVID-19 treatment
     Dosage: [NIRMATRELVIR 300 MG]/[RITONAVIR 100 MG]; 2X/DAY (FOR FIVE DAYS)
     Route: 048
     Dates: start: 20231120, end: 20231121
  2. LOSARTAN [Concomitant]
     Active Substance: LOSARTAN
     Dosage: UNK
     Dates: start: 2019

REACTIONS (3)
  - Oropharyngeal pain [Recovered/Resolved]
  - Fatigue [Unknown]
  - Illness [Unknown]

NARRATIVE: CASE EVENT DATE: 20231121
